FAERS Safety Report 24686058 (Version 1)
Quarter: 2024Q4

REPORT INFORMATION
  Report Type: Spontaneous
  Country: US (occurrence: None)
  Receive Date: 20241127
  Receipt Date: 20241127
  Transmission Date: 20250115
  Serious: Yes (Disabling)
  Sender: Public
  Company Number: None

PATIENT
  Age: 79 Year
  Sex: Male
  Weight: 61.2 kg

DRUGS (5)
  1. OZEMPIC [Suspect]
     Active Substance: SEMAGLUTIDE
     Indication: Glycosylated haemoglobin increased
     Dosage: OTHER FREQUENCY : ONCE A WEEK;?OTHER ROUTE : INJECTED INTO A BELLY AREA;?
     Route: 050
  2. INFLUENZA VIRUS VACCINE [Suspect]
     Active Substance: INFLUENZA VIRUS VACCINE
  3. OZEMPIC [Concomitant]
     Active Substance: SEMAGLUTIDE
  4. ATORVASTATIN CALCIUM [Concomitant]
     Active Substance: ATORVASTATIN CALCIUM
  5. Centrum Adults 50+ [Concomitant]

REACTIONS (4)
  - Injection site pain [None]
  - Wrong technique in product usage process [None]
  - Insomnia [None]
  - Movement disorder [None]

NARRATIVE: CASE EVENT DATE: 20241122
